FAERS Safety Report 25793621 (Version 1)
Quarter: 2025Q3

REPORT INFORMATION
  Report Type: Spontaneous
  Country: US (occurrence: US)
  Receive Date: 20250912
  Receipt Date: 20250912
  Transmission Date: 20251021
  Serious: Yes (Hospitalization)
  Sender: ELI LILLY AND COMPANY
  Company Number: US-ELI_LILLY_AND_COMPANY-US202509005943

PATIENT
  Age: 73 Year
  Sex: Female

DRUGS (5)
  1. HUMALOG [Suspect]
     Active Substance: INSULIN LISPRO
     Indication: Type 2 diabetes mellitus
     Route: 058
  2. HUMALOG [Suspect]
     Active Substance: INSULIN LISPRO
     Indication: Type 2 diabetes mellitus
     Route: 058
  3. HUMALOG [Suspect]
     Active Substance: INSULIN LISPRO
     Route: 058
  4. HUMALOG [Suspect]
     Active Substance: INSULIN LISPRO
     Route: 058
  5. TRESIBA [Concomitant]
     Active Substance: INSULIN DEGLUDEC
     Indication: Product used for unknown indication

REACTIONS (5)
  - Fall [Recovered/Resolved]
  - Pelvic fracture [Recovered/Resolved]
  - Blood glucose increased [Recovered/Resolved]
  - Diabetic ketoacidosis [Recovered/Resolved]
  - Product storage error [Unknown]

NARRATIVE: CASE EVENT DATE: 20230101
